FAERS Safety Report 10511964 (Version 4)
Quarter: 2015Q1

REPORT INFORMATION
  Report Type: Spontaneous
  Country: US (occurrence: US)
  Receive Date: 20141010
  Receipt Date: 20150305
  Transmission Date: 20150720
  Serious: Yes (Hospitalization, Other)
  Sender: FDA-Public Use
  Company Number: US-PFIZER INC-2014276443

PATIENT
  Age: 60 Year
  Sex: Female
  Weight: 83 kg

DRUGS (7)
  1. LEVOTHYROXINE [Concomitant]
     Active Substance: LEVOTHYROXINE
     Dosage: UNK
  2. LYRICA [Suspect]
     Active Substance: PREGABALIN
     Indication: TEMPORAL ARTERITIS
     Dosage: 75 MG, 2X/DAY
     Route: 048
     Dates: start: 2006
  3. HYDROCODONE [Concomitant]
     Active Substance: HYDROCODONE
     Indication: ARTHRITIS
     Dosage: 10/325 MG, 3X/DAY
  4. LYRICA [Suspect]
     Active Substance: PREGABALIN
     Indication: DIABETIC NEUROPATHY
     Dosage: 100 MG, 2X/DAY
     Route: 048
     Dates: end: 201410
  5. LYRICA [Suspect]
     Active Substance: PREGABALIN
     Indication: NEUROPATHY PERIPHERAL
  6. GLIPIZIDE. [Concomitant]
     Active Substance: GLIPIZIDE
     Indication: DIABETES MELLITUS
     Dosage: 10 MG, DAILY
  7. NOVOLOG 70/30 [Concomitant]
     Indication: DIABETES MELLITUS
     Dosage: UNK

REACTIONS (7)
  - Pain [Unknown]
  - Diabetes mellitus [Unknown]
  - Neuropathy peripheral [Unknown]
  - Thyroid disorder [Unknown]
  - Peroneal nerve palsy [Unknown]
  - Nerve compression [Unknown]
  - Sciatic nerve injury [Unknown]

NARRATIVE: CASE EVENT DATE: 2008
